FAERS Safety Report 8508867-2 (Version None)
Quarter: 2012Q3

REPORT INFORMATION
  Report Type: 
  Country: None (occurrence: None)
  Receive Date: 20120713
  Receipt Date: 20120706
  Transmission Date: 20120928
  Serious: No
  Sender: FDA-Public Use
  Company Number: US-PFIZER INC-2012118668

PATIENT
  Sex: Female
  Weight: 61.224 kg

DRUGS (11)
  1. PREMARIN [Suspect]
     Indication: VAGINAL DISORDER
     Dosage: UNK, 1X/DAY
     Route: 067
     Dates: start: 20120302, end: 20120515
  2. PREMARIN [Suspect]
     Dosage: UNSPECIFIED DOSE EVERY 8 DAYS OR 9 DAYS
     Route: 067
     Dates: start: 20120101, end: 20120315
  3. LISINOPRIL [Concomitant]
     Indication: HYPERTENSION
     Dosage: UNK, 1X/DAY
  4. PRILOSEC [Concomitant]
     Dosage: 20 MG, 1X/DAY
  5. HYDROCHLOROTHIAZIDE [Concomitant]
     Dosage: 12.5 MG, 1X/DAY
  6. QUININE [Concomitant]
     Dosage: UNK
  7. PREMARIN [Suspect]
     Dosage: UNK, 3X/WEEK
     Route: 067
     Dates: start: 20120301, end: 20120101
  8. IBUPROFEN [Suspect]
     Dosage: UNK
  9. LOVASTATIN [Concomitant]
     Dosage: UNK, 1X/DAY
  10. PREMARIN [Suspect]
     Dosage: UNK
     Route: 067
  11. ASPIRIN [Concomitant]
     Dosage: UNK, 1X/DAY

REACTIONS (6)
  - MALAISE [None]
  - DRUG INTOLERANCE [None]
  - RASH [None]
  - NAUSEA [None]
  - FEELING ABNORMAL [None]
  - VAGINAL ODOUR [None]
